FAERS Safety Report 5028480-1 (Version None)
Quarter: 2006Q2

REPORT INFORMATION
  Report Type: 
  Country: None (occurrence: None)
  Receive Date: 20060617
  Receipt Date: 20060614
  Transmission Date: 20061013
  Serious: Yes (Hospitalization)
  Sender: FDA-Public Use
  Company Number: FR-GLAXOSMITHKLINE-B0427426A

PATIENT
  Age: 88 Year
  Sex: Male

DRUGS (1)
  1. AUGMENTIN '125' [Suspect]
     Dates: start: 20060519, end: 20060519

REACTIONS (4)
  - BODY TEMPERATURE INCREASED [None]
  - BRONCHOSPASM [None]
  - RESPIRATORY DISTRESS [None]
  - URTICARIA [None]
